FAERS Safety Report 5209006-6 (Version None)
Quarter: 2007Q1

REPORT INFORMATION
  Report Type: 
  Country: None (occurrence: None)
  Receive Date: 20070111
  Receipt Date: 20070111
  Transmission Date: 20070707
  Serious: Yes (Hospitalization)
  Sender: FDA-Public Use
  Company Number: None

PATIENT
  Age: 58 Year
  Sex: Male
  Weight: 53.2069 kg

DRUGS (2)
  1. CETUXIMAB   BRISTOL-MYER SQUIBBS [Suspect]
     Indication: GASTRIC CANCER
     Dosage: 438MG WEEKLY IV
     Route: 042
     Dates: start: 20061023, end: 20070109
  2. FLUOROURACIL [Suspect]
     Indication: GASTRIC CANCER
     Dosage: 525 MG EVERY 4 WEEKS IV
     Route: 042
     Dates: start: 20061023, end: 20061226

REACTIONS (8)
  - BLOOD ELECTROLYTES ABNORMAL [None]
  - FATIGUE [None]
  - FISTULA [None]
  - HAEMOPTYSIS [None]
  - MALNUTRITION [None]
  - OESOPHAGITIS [None]
  - PAIN [None]
  - WEIGHT DECREASED [None]
